FAERS Safety Report 13060244 (Version 2)
Quarter: 2017Q2

REPORT INFORMATION
  Report Type: Report from Study
  Country: US (occurrence: US)
  Receive Date: 20161223
  Receipt Date: 20170428
  Transmission Date: 20170830
  Serious: Yes (Hospitalization, Congenital Anomaly, Other)
  Sender: FDA-Public Use
  Company Number: US-GILEAD-2016-0250333

PATIENT
  Sex: Male

DRUGS (26)
  1. INDOMETHACIN                       /00003801/ [Concomitant]
     Active Substance: INDOMETHACIN
     Route: 064
  2. NALBUPHINE [Concomitant]
     Active Substance: NALBUPHINE
     Route: 064
  3. DOCUSATE [Concomitant]
     Active Substance: DOCUSATE
     Route: 064
  4. METOCLOPRAMIDE. [Concomitant]
     Active Substance: METOCLOPRAMIDE
     Route: 064
  5. AZT [Concomitant]
     Active Substance: ZIDOVUDINE
     Route: 064
  6. PROMETHAZINE [Concomitant]
     Active Substance: PROMETHAZINE\PROMETHAZINE HYDROCHLORIDE
     Route: 064
  7. MACROBID [Concomitant]
     Active Substance: NITROFURANTOIN\NITROFURANTOIN MONOHYDRATE
     Route: 064
  8. ENOXAPARIN [Concomitant]
     Active Substance: ENOXAPARIN
     Route: 064
  9. CLINDAMYCIN. [Concomitant]
     Active Substance: CLINDAMYCIN
     Route: 064
  10. FLAGYL [Concomitant]
     Active Substance: METRONIDAZOLE\METRONIDAZOLE HYDROCHLORIDE
     Route: 064
  11. ACYCLOVIR                          /00587301/ [Concomitant]
     Active Substance: ACYCLOVIR
     Route: 064
  12. EMTRICITABINE/TENOFOVIR DISOPROXIL FUMARATE [Suspect]
     Active Substance: EMTRICITABINE\TENOFOVIR DISOPROXIL FUMARATE
     Indication: HIV INFECTION
     Route: 064
  13. COMPAZINE                          /00013302/ [Concomitant]
     Active Substance: PROCHLORPERAZINE EDISYLATE
     Route: 064
  14. DEXTROSE 5% [Concomitant]
     Active Substance: DEXTROSE
     Route: 064
  15. PENICILLIN G POTASSIUM. [Concomitant]
     Active Substance: PENICILLIN G POTASSIUM
     Route: 064
  16. LACTATED RINGERS [Concomitant]
     Active Substance: CALCIUM CHLORIDE\POTASSIUM CHLORIDE\SODIUM CHLORIDE\SODIUM LACTATE
     Route: 064
  17. CLOTRIMAZOLE. [Concomitant]
     Active Substance: CLOTRIMAZOLE
     Route: 064
  18. NORVIR [Concomitant]
     Active Substance: RITONAVIR
     Route: 064
  19. REYATAZ [Concomitant]
     Active Substance: ATAZANAVIR SULFATE
     Route: 064
  20. BETAMETHASONE. [Concomitant]
     Active Substance: BETAMETHASONE
     Route: 064
  21. IBUPROFEN. [Concomitant]
     Active Substance: IBUPROFEN
     Route: 064
  22. REGLAN [Concomitant]
     Active Substance: METOCLOPRAMIDE HYDROCHLORIDE
     Route: 064
  23. AZITHROMYCIN ANHYDROUS. [Concomitant]
     Active Substance: AZITHROMYCIN ANHYDROUS
     Route: 064
  24. FERROUS SULFATE. [Concomitant]
     Active Substance: FERROUS SULFATE
     Route: 064
  25. PRENATAL VITAMINS                  /02014401/ [Concomitant]
     Active Substance: VITAMINS
     Route: 064
  26. PROCHLORPERAZINE. [Concomitant]
     Active Substance: PROCHLORPERAZINE
     Route: 064

REACTIONS (6)
  - Premature baby [Unknown]
  - Feeding intolerance [Unknown]
  - Hyperbilirubinaemia neonatal [Unknown]
  - Congenital hydrocephalus [Unknown]
  - Respiratory distress [Unknown]
  - Foetal exposure during pregnancy [Unknown]
